FAERS Safety Report 5053012-1 (Version None)
Quarter: 2006Q3

REPORT INFORMATION
  Report Type: 
  Country: None (occurrence: None)
  Receive Date: 20060712
  Receipt Date: 20060628
  Transmission Date: 20061208
  Serious: Yes (Hospitalization, Other)
  Sender: FDA-Public Use
  Company Number: 2006056473

PATIENT
  Sex: Male

DRUGS (2)
  1. BEXTRA [Suspect]
     Indication: APPENDIX DISORDER
     Dosage: 1 IN 1 D
     Dates: start: 20020101
  2. BEXTRA [Suspect]
     Indication: BACK PAIN
     Dosage: 1 IN 1 D
     Dates: start: 20020101

REACTIONS (4)
  - CARDIOVASCULAR DISORDER [None]
  - CEREBROVASCULAR DISORDER [None]
  - MYOCARDIAL INFARCTION [None]
  - THROMBOSIS [None]
